FAERS Safety Report 8796431 (Version 1)
Quarter: 2012Q4

REPORT INFORMATION
  Report Type: 
  Country: US (occurrence: US)
  Receive Date: 20120920
  Receipt Date: 20120920
  Transmission Date: 20130627
  Serious: Yes (Hospitalization, Other)
  Sender: FDA-Public Use
  Company Number: US-ROXANE LABORATORIES, INC.-2012-RO-01865RO

PATIENT
  Age: 56 Year
  Sex: Male

DRUGS (8)
  1. CITALOPRAM [Suspect]
     Dosage: 20 mg
     Route: 048
  2. SERTRALINE [Suspect]
  3. ZIDOVUDINE [Suspect]
  4. ASPIRIN [Suspect]
  5. HYDRALAZINE [Suspect]
  6. LISINOPRIL [Suspect]
  7. LAMIVUDINE [Suspect]
  8. RALTEGRAVIR [Suspect]

REACTIONS (3)
  - Hypoglycaemia [Recovered/Resolved]
  - Ileal ulcer [Unknown]
  - Somnolence [Unknown]
